FAERS Safety Report 17652230 (Version 3)
Quarter: 2020Q4

REPORT INFORMATION
  Report Type: Spontaneous
  Country: PL (occurrence: PL)
  Receive Date: 20200409
  Receipt Date: 20201023
  Transmission Date: 20210113
  Serious: Yes (Hospitalization)
  Sender: FDA-Public Use
  Company Number: NVSC2020PL095606

PATIENT
  Age: 28 Year
  Sex: Male

DRUGS (19)
  1. PREDNISONE. [Suspect]
     Active Substance: PREDNISONE
     Indication: RENAL TRANSPLANT
     Dosage: UNK
     Route: 065
     Dates: start: 2013
  2. CILASTATIN [Concomitant]
     Active Substance: CILASTATIN
     Indication: URINARY TRACT INFECTION
     Dosage: UNK
     Route: 065
  3. MYCOPHENOLATE MOFETIL. [Suspect]
     Active Substance: MYCOPHENOLATE MOFETIL
     Indication: IMMUNOSUPPRESSANT DRUG THERAPY
  4. MEROPENEM. [Concomitant]
     Active Substance: MEROPENEM
     Indication: URINARY TRACT INFECTION
     Dosage: UNK
     Route: 065
  5. TACROLIMUS. [Suspect]
     Active Substance: TACROLIMUS
     Indication: RENAL TRANSPLANT
     Dosage: UNK
     Route: 065
     Dates: start: 2013
  6. MYCOPHENOLATE MOFETIL. [Suspect]
     Active Substance: MYCOPHENOLATE MOFETIL
     Indication: RENAL TRANSPLANT
     Dosage: UNK
     Route: 065
     Dates: start: 2013
  7. EVEROLIMUS. [Suspect]
     Active Substance: EVEROLIMUS
     Indication: URINARY TRACT INFECTION
  8. METHYLPREDNISOLONE. [Suspect]
     Active Substance: METHYLPREDNISOLONE
     Indication: IMMUNOSUPPRESSANT DRUG THERAPY
  9. VANCOMYCIN [Concomitant]
     Active Substance: VANCOMYCIN
     Indication: CLOSTRIDIUM DIFFICILE INFECTION
     Dosage: UNK
     Route: 065
  10. FIDAXOMICIN [Concomitant]
     Active Substance: FIDAXOMICIN
     Indication: CLOSTRIDIUM DIFFICILE INFECTION
     Dosage: UNK
     Route: 065
  11. TACROLIMUS. [Suspect]
     Active Substance: TACROLIMUS
     Indication: IMMUNOSUPPRESSANT DRUG THERAPY
  12. PREDNISONE. [Suspect]
     Active Substance: PREDNISONE
     Indication: IMMUNOSUPPRESSANT DRUG THERAPY
  13. RITUXIMAB. [Suspect]
     Active Substance: RITUXIMAB
     Indication: POST TRANSPLANT LYMPHOPROLIFERATIVE DISORDER
     Dosage: 375 MG/M2, QW
     Route: 065
  14. RITUXIMAB. [Suspect]
     Active Substance: RITUXIMAB
     Dosage: MAINTENANCE, 4 DOSES EVERY 3 WEEKS
     Route: 065
  15. METHYLPREDNISOLONE. [Suspect]
     Active Substance: METHYLPREDNISOLONE
     Indication: URINARY TRACT INFECTION
     Dosage: 4 MG, QD
     Route: 065
  16. IMIPENEM [Concomitant]
     Active Substance: IMIPENEM
     Indication: URINARY TRACT INFECTION
     Dosage: UNK
     Route: 065
  17. EVEROLIMUS. [Suspect]
     Active Substance: EVEROLIMUS
     Indication: IMMUNOSUPPRESSANT DRUG THERAPY
     Dosage: 2 MG, BID
     Route: 065
  18. METRONIDAZOLE. [Concomitant]
     Active Substance: METRONIDAZOLE
     Indication: CLOSTRIDIUM DIFFICILE INFECTION
     Dosage: UNK
     Route: 065
  19. VALGANCICLOVIR. [Concomitant]
     Active Substance: VALGANCICLOVIR
     Indication: ANTIVIRAL PROPHYLAXIS
     Dosage: UNK
     Route: 065

REACTIONS (7)
  - Urinary tract infection [Unknown]
  - Diarrhoea [Recovered/Resolved]
  - Post transplant lymphoproliferative disorder [Recovered/Resolved]
  - Product use in unapproved indication [Unknown]
  - Clostridium difficile infection [Recovered/Resolved]
  - Abdominal pain [Recovered/Resolved]
  - Intestinal ulcer [Recovered/Resolved]

NARRATIVE: CASE EVENT DATE: 2014
